FAERS Safety Report 22265145 (Version 1)
Quarter: 2023Q2

REPORT INFORMATION
  Report Type: Spontaneous
  Country: CA (occurrence: CA)
  Receive Date: 20230428
  Receipt Date: 20230428
  Transmission Date: 20230721
  Serious: Yes (Other)
  Sender: FDA-Public Use
  Company Number: CA-FreseniusKabi-FK202305294

PATIENT
  Age: 86 Year
  Sex: Female

DRUGS (1)
  1. PIPERACILLIN SODIUM\TAZOBACTAM SODIUM [Suspect]
     Active Substance: PIPERACILLIN SODIUM\TAZOBACTAM SODIUM
     Indication: Product used for unknown indication
     Route: 041

REACTIONS (10)
  - Depressed level of consciousness [Unknown]
  - Pneumonia aspiration [Unknown]
  - Lung infiltration [Unknown]
  - Condition aggravated [Unknown]
  - Allergic eosinophilia [Unknown]
  - Urticaria [Unknown]
  - Rash erythematous [Unknown]
  - Pyrexia [Unknown]
  - Drug reaction with eosinophilia and systemic symptoms [Unknown]
  - Drug hypersensitivity [Unknown]
